FAERS Safety Report 12948825 (Version 1)
Quarter: 2016Q4

REPORT INFORMATION
  Report Type: Spontaneous
  Country: CN (occurrence: CN)
  Receive Date: 20161116
  Receipt Date: 20161116
  Transmission Date: 20170207
  Serious: Yes (Other)
  Sender: FDA-Public Use
  Company Number: CN-JNJFOC-20161107707

PATIENT
  Sex: Male

DRUGS (2)
  1. MOTRIN [Suspect]
     Active Substance: IBUPROFEN
     Route: 065
  2. MOTRIN [Suspect]
     Active Substance: IBUPROFEN
     Indication: RHEUMATOID ARTHRITIS
     Route: 065

REACTIONS (4)
  - Angina pectoris [Unknown]
  - Off label use [Unknown]
  - Vision blurred [Unknown]
  - Product use issue [Unknown]

NARRATIVE: CASE EVENT DATE: 20161107
